FAERS Safety Report 11536910 (Version 1)
Quarter: 2015Q3

REPORT INFORMATION
  Report Type: Spontaneous
  Country: US (occurrence: None)
  Receive Date: 20150921
  Receipt Date: 20150921
  Transmission Date: 20151125
  Serious: Yes (Hospitalization, Other)
  Sender: FDA-Public Use
  Company Number: None

PATIENT
  Age: 74 Year
  Weight: 66.23 kg

DRUGS (1)
  1. RANEXA [Suspect]
     Active Substance: RANOLAZINE
     Indication: ANGINA PECTORIS
     Route: 048
     Dates: start: 20150904, end: 20150918

REACTIONS (15)
  - Heart rate increased [None]
  - Hypoaesthesia [None]
  - Headache [None]
  - Dyspnoea [None]
  - Nausea [None]
  - Asthenia [None]
  - Dizziness [None]
  - Palpitations [None]
  - Vertigo [None]
  - Dry mouth [None]
  - Pain [None]
  - Muscular weakness [None]
  - Tremor [None]
  - Tinnitus [None]
  - Paraesthesia [None]

NARRATIVE: CASE EVENT DATE: 20150915
